APPROVED DRUG PRODUCT: CHILDREN'S ELIXSURE
Active Ingredient: IBUPROFEN
Strength: 100MG/5ML
Dosage Form/Route: SUSPENSION;ORAL
Application: N021604 | Product #001
Applicant: MOBERG PHARMA NORTH AMERICA LLC
Approved: Jan 7, 2004 | RLD: No | RS: No | Type: DISCN